FAERS Safety Report 6505508-0 (Version None)
Quarter: 2009Q4

REPORT INFORMATION
  Report Type: 
  Country: None (occurrence: None)
  Receive Date: 20091218
  Receipt Date: 20091207
  Transmission Date: 20100525
  Serious: Yes (Hospitalization, Other)
  Sender: FDA-Public Use
  Company Number: US-PFIZER INC-2009307555

PATIENT
  Age: 94 Year
  Sex: Female

DRUGS (11)
  1. ZYVOX [Interacting]
     Indication: URINARY TRACT INFECTION
     Dosage: 600 MG, 2X/DAY
     Dates: start: 20091203, end: 20091201
  2. ZOLOFT [Suspect]
     Dates: end: 20090101
  3. SYNTHROID [Interacting]
     Indication: THYROID DISORDER
  4. KLONOPIN [Interacting]
     Indication: PANIC DISORDER
  5. KLONOPIN [Interacting]
     Indication: ANXIETY
  6. LASIX [Interacting]
     Indication: CARDIAC FAILURE CONGESTIVE
     Dosage: 40 MG, ALTERNATE DAY
  7. LASIX [Interacting]
     Dosage: 80 MG, ALTERNATE DAY
  8. LOPRESSOR [Concomitant]
     Indication: BLOOD PRESSURE
     Dosage: FREQUENCY: 2X/DAY,
  9. POTASSIUM [Concomitant]
  10. PROTONIX [Concomitant]
     Dosage: FREQUENCY: 2X/DAY,
  11. MELATONIN [Concomitant]

REACTIONS (7)
  - CONVULSION [None]
  - DRUG INTERACTION [None]
  - HOSPITALISATION [None]
  - MOVEMENT DISORDER [None]
  - SEROTONIN SYNDROME [None]
  - VERTIGO [None]
  - VISUAL IMPAIRMENT [None]
